FAERS Safety Report 23851001 (Version 1)
Quarter: 2024Q2

REPORT INFORMATION
  Report Type: Spontaneous
  Country: DE (occurrence: DE)
  Receive Date: 20240514
  Receipt Date: 20240514
  Transmission Date: 20240716
  Serious: Yes (Other)
  Sender: FDA-Public Use
  Company Number: None

PATIENT
  Age: 61 Year
  Sex: Female
  Weight: 80 kg

DRUGS (1)
  1. KEYTRUDA [Suspect]
     Active Substance: PEMBROLIZUMAB
     Indication: Neoplasm malignant
     Dosage: 400 MILLIGRAM, UNK
     Route: 042
     Dates: start: 20230922, end: 20240201

REACTIONS (5)
  - Diplopia [Not Recovered/Not Resolved]
  - Type IIb hyperlipidaemia [Not Recovered/Not Resolved]
  - Congenital generalised lipodystrophy [Not Recovered/Not Resolved]
  - Weight decreased [Not Recovered/Not Resolved]
  - Enophthalmos [Not Recovered/Not Resolved]

NARRATIVE: CASE EVENT DATE: 20240101
